FAERS Safety Report 20858707 (Version 1)
Quarter: 2022Q2

REPORT INFORMATION
  Report Type: Spontaneous
  Country: US (occurrence: None)
  Receive Date: 20220522
  Receipt Date: 20220522
  Transmission Date: 20220720
  Serious: No
  Sender: FDA-Public Use
  Company Number: 2022A181717

PATIENT
  Age: 23841 Day
  Sex: Female
  Weight: 74.8 kg

DRUGS (1)
  1. PULMICORT FLEXHALER [Suspect]
     Active Substance: BUDESONIDE
     Indication: Cough
     Dosage: 180 MCG, ONE INHALATION DAILY
     Route: 055

REACTIONS (4)
  - Cough [Unknown]
  - Drug ineffective [Unknown]
  - Drug delivery system issue [Unknown]
  - Device malfunction [Unknown]

NARRATIVE: CASE EVENT DATE: 20220508
